FAERS Safety Report 17817434 (Version 2)
Quarter: 2022Q1

REPORT INFORMATION
  Report Type: Spontaneous
  Country: US (occurrence: US)
  Receive Date: 20200522
  Receipt Date: 20220114
  Transmission Date: 20220423
  Serious: No
  Sender: FDA-Public Use
  Company Number: US-AIMMUNE THERAPEUTICS, INC.-2020AIM00134

PATIENT

DRUGS (5)
  1. PALFORZIA [Suspect]
     Active Substance: PEANUT
     Indication: Food allergy
     Dosage: 0.5 MG, ONCE
     Route: 048
     Dates: start: 20200408, end: 20200408
  2. PALFORZIA [Suspect]
     Active Substance: PEANUT
     Dosage: 1 MG, ONCE
     Route: 048
     Dates: start: 20200408, end: 20200408
  3. PALFORZIA [Suspect]
     Active Substance: PEANUT
     Dosage: 1.5 MG, ONCE
     Route: 048
     Dates: start: 20200408, end: 20200408
  4. PALFORZIA [Suspect]
     Active Substance: PEANUT
     Dosage: 3 MG, ONCE
     Route: 048
     Dates: start: 20200408, end: 20200408
  5. PALFORZIA [Suspect]
     Active Substance: PEANUT
     Dosage: 1 MG, 1X/DAY, UP-DOSING
     Route: 048
     Dates: start: 20200409

REACTIONS (2)
  - Intentional product misuse [Not Recovered/Not Resolved]
  - Inappropriate schedule of product administration [Recovered/Resolved]

NARRATIVE: CASE EVENT DATE: 20200408
